FAERS Safety Report 5357361-9 (Version None)
Quarter: 2007Q2

REPORT INFORMATION
  Report Type: 
  Country: None (occurrence: None)
  Receive Date: 20070614
  Receipt Date: 20070607
  Transmission Date: 20071010
  Serious: Yes (Hospitalization)
  Sender: FDA-Public Use
  Company Number: B0468975A

PATIENT
  Age: 62 Year
  Sex: Female
  Weight: 100 kg

DRUGS (2)
  1. AUGMENTIN '125' [Suspect]
     Indication: DRUG USE FOR UNKNOWN INDICATION
     Dosage: 625MG THREE TIMES PER DAY
     Route: 048
     Dates: start: 20070319
  2. PREDNISOLONE [Concomitant]

REACTIONS (5)
  - CHOLESTASIS [None]
  - LIVER DISORDER [None]
  - MALAISE [None]
  - URINE ABNORMALITY [None]
  - YELLOW SKIN [None]
